FAERS Safety Report 12695650 (Version 4)
Quarter: 2019Q4

REPORT INFORMATION
  Report Type: Spontaneous
  Country: KR (occurrence: KR)
  Receive Date: 20160829
  Receipt Date: 20191111
  Transmission Date: 20200122
  Serious: Yes (Hospitalization, Other)
  Sender: FDA-Public Use
  Company Number: KR-SA-2016SA153133

PATIENT
  Age: 71 Year
  Sex: Male

DRUGS (4)
  1. STILNOX [Suspect]
     Active Substance: ZOLPIDEM TARTRATE
     Indication: PERIODIC LIMB MOVEMENT DISORDER
  2. PRAMIPEXOLE. [Concomitant]
     Active Substance: PRAMIPEXOLE
     Dosage: .5 MG,HS
     Route: 065
  3. STILNOX [Suspect]
     Active Substance: ZOLPIDEM TARTRATE
     Indication: SLEEP APNOEA SYNDROME
     Dosage: 12.5 MG,HS
     Route: 048
  4. ATIVAN [Concomitant]
     Active Substance: LORAZEPAM
     Dosage: .5 MG,HS
     Route: 065

REACTIONS (7)
  - Restless legs syndrome [Unknown]
  - Behaviour disorder [Recovered/Resolved]
  - Anterograde amnesia [Recovered/Resolved]
  - Therapeutic response decreased [Unknown]
  - Sleep apnoea syndrome [Unknown]
  - Sleep-related eating disorder [Recovered/Resolved]
  - Amnesia [Unknown]
